FAERS Safety Report 19922129 (Version 1)
Quarter: 2021Q4

REPORT INFORMATION
  Report Type: Report from Study
  Country: US (occurrence: US)
  Receive Date: 20211005
  Receipt Date: 20211005
  Transmission Date: 20220303
  Serious: Yes (Other)
  Sender: FDA-Public Use
  Company Number: US-NOVARTISPH-NVSC2021US221663

PATIENT
  Sex: Female

DRUGS (2)
  1. PROMACTA [Suspect]
     Active Substance: ELTROMBOPAG OLAMINE
     Indication: Immune thrombocytopenia
     Dosage: 25 MG (EVERY OTHER DAY)
     Route: 048
     Dates: start: 202002
  2. PREDNISONE [Concomitant]
     Active Substance: PREDNISONE
     Indication: Product used for unknown indication
     Dosage: UNK (LOW DOSE)
     Route: 065

REACTIONS (3)
  - Blood pressure systolic increased [Unknown]
  - Platelet count decreased [Unknown]
  - Blood pressure diastolic decreased [Unknown]
